FAERS Safety Report 13087085 (Version 2)
Quarter: 2018Q2

REPORT INFORMATION
  Report Type: Report from Study
  Country: FR (occurrence: FR)
  Receive Date: 20170105
  Receipt Date: 20180516
  Transmission Date: 20180711
  Serious: Yes (Disabling)
  Sender: FDA-Public Use
  Company Number: FR-ROCHE-1425062

PATIENT
  Age: 54 Year
  Sex: Male
  Weight: 79 kg

DRUGS (10)
  1. DOLIPRANE [Concomitant]
     Active Substance: ACETAMINOPHEN
     Route: 048
     Dates: start: 20140205, end: 20140207
  2. VITAMINE A DULCIS [Concomitant]
     Indication: EYE IRRITATION
     Route: 047
     Dates: start: 20140604, end: 20140823
  3. ARTELAC (FRANCE) [Concomitant]
     Indication: EYE IRRITATION
     Route: 047
     Dates: start: 20140604, end: 20140823
  4. COBIMETINIB. [Suspect]
     Active Substance: COBIMETINIB
     Indication: MALIGNANT MELANOMA
     Dosage: MOST RECENT DOSE PRIOR TO AE : 14/JAN/2014
     Route: 048
     Dates: start: 20130920
  5. VEMURAFENIB. [Suspect]
     Active Substance: VEMURAFENIB
     Indication: MALIGNANT MELANOMA
     Dosage: MOST RECENT DOSE PRIOR TO ONSET OF CENTRAL SEROUS RETINOPATHY : 14/JAN/2014?MOST RECENT DOSE PRIOR T
     Route: 048
     Dates: start: 20130920
  6. DOLIPRANE [Concomitant]
     Active Substance: ACETAMINOPHEN
     Indication: HEADACHE
     Route: 048
     Dates: start: 20131013
  7. LOCOID [Concomitant]
     Active Substance: HYDROCORTISONE BUTYRATE
     Indication: RASH
     Route: 061
     Dates: start: 20131018
  8. PRIMPERAN [Concomitant]
     Active Substance: METOCLOPRAMIDE HYDROCHLORIDE
     Indication: NAUSEA
     Route: 048
     Dates: start: 20140802, end: 20140804
  9. DEXERYL (FRANCE) [Concomitant]
     Active Substance: GLYCERIN\PARAFFIN
     Indication: RASH
     Route: 061
     Dates: start: 20131018
  10. AUGMENTIN [Concomitant]
     Active Substance: AMOXICILLIN\CLAVULANATE POTASSIUM
     Indication: SKIN WOUND
     Route: 048
     Dates: start: 20140207, end: 20140212

REACTIONS (2)
  - Facial paralysis [Recovered/Resolved]
  - Chorioretinopathy [Recovered/Resolved]

NARRATIVE: CASE EVENT DATE: 20140114
